FAERS Safety Report 5684914-0 (Version None)
Quarter: 2008Q1

REPORT INFORMATION
  Report Type: 
  Country: None (occurrence: None)
  Receive Date: 20080328
  Receipt Date: 20071211
  Transmission Date: 20080703
  Serious: Yes (Death)
  Sender: FDA-Public Use
  Company Number: US-BRISTOL-MYERS SQUIBB COMPANY-14011720

PATIENT
  Age: 65 Year
  Sex: Male
  Weight: 112 kg

DRUGS (4)
  1. CETUXIMAB [Suspect]
     Indication: RECTAL CANCER METASTATIC
     Route: 042
  2. DIPHENHYDRAMINE HCL [Concomitant]
     Indication: PREMEDICATION
  3. ALOXI [Concomitant]
     Indication: PREMEDICATION
  4. DEXAMETHASONE TAB [Concomitant]
     Indication: PREMEDICATION

REACTIONS (3)
  - CARDIO-RESPIRATORY ARREST [None]
  - MYOCARDIAL INFARCTION [None]
  - VENTRICULAR TACHYCARDIA [None]
